FAERS Safety Report 5713160-7 (Version None)
Quarter: 2008Q2

REPORT INFORMATION
  Report Type: 
  Country: None (occurrence: None)
  Receive Date: 20080422
  Receipt Date: 20080410
  Transmission Date: 20081010
  Serious: Yes (Other)
  Sender: FDA-Public Use
  Company Number: AU-JNJFOC-20080403279

PATIENT
  Age: 25 Year
  Sex: Female

DRUGS (4)
  1. TOPIRAMATE [Suspect]
  2. TOPIRAMATE [Suspect]
     Indication: EPILEPSY
  3. LAMOTRIGINE [Concomitant]
  4. VENLAFAXINE HCL [Concomitant]

REACTIONS (4)
  - ANGLE CLOSURE GLAUCOMA [None]
  - CONJUNCTIVAL OEDEMA [None]
  - FLAT ANTERIOR CHAMBER OF EYE [None]
  - MYOPIA [None]
